FAERS Safety Report 11692204 (Version 8)
Quarter: 2017Q1

REPORT INFORMATION
  Report Type: Spontaneous
  Country: US (occurrence: US)
  Receive Date: 20151103
  Receipt Date: 20170202
  Transmission Date: 20170428
  Serious: No
  Sender: FDA-Public Use
  Company Number: PHEH2015US022187

PATIENT
  Sex: Female
  Weight: 41.27 kg

DRUGS (1)
  1. ZOFRAN ODT [Suspect]
     Active Substance: ONDANSETRON HYDROCHLORIDE
     Indication: VOMITING IN PREGNANCY
     Dosage: 4 MG, QD
     Route: 048
     Dates: start: 20020829, end: 20030228

REACTIONS (16)
  - Urinary tract infection [Unknown]
  - Maternal exposure during pregnancy [Unknown]
  - Product use issue [Unknown]
  - Pharyngitis streptococcal [Unknown]
  - Dysuria [Unknown]
  - Astigmatism [Unknown]
  - Presbyopia [Unknown]
  - Pain [Unknown]
  - Dyspnoea [Unknown]
  - Emotional distress [Unknown]
  - Amnesia [Unknown]
  - Nasal injury [Unknown]
  - Anxiety [Unknown]
  - Breast tenderness [Unknown]
  - Depression [Unknown]
  - Hypermetropia [Unknown]
